FAERS Safety Report 5262650-2 (Version None)
Quarter: 2007Q1

REPORT INFORMATION
  Report Type: 
  Country: None (occurrence: None)
  Receive Date: 20070308
  Receipt Date: 20070226
  Transmission Date: 20070707
  Serious: Yes (Hospitalization)
  Sender: FDA-Public Use
  Company Number: 2006BI017883

PATIENT
  Age: 57 Year
  Sex: Male

DRUGS (4)
  1. AVONEX [Suspect]
     Indication: MULTIPLE SCLEROSIS
     Dosage: 30 UG; QW; IM
     Route: 030
     Dates: start: 20050318
  2. ASPIRIN [Concomitant]
  3. TESTOGEL [Concomitant]
  4. TEBONIN [Concomitant]

REACTIONS (4)
  - ANURIA [None]
  - COLON CANCER [None]
  - HYPOKALAEMIA [None]
  - POST PROCEDURAL COMPLICATION [None]
